FAERS Safety Report 5703986-8 (Version None)
Quarter: 2008Q2

REPORT INFORMATION
  Report Type: 
  Country: None (occurrence: None)
  Receive Date: 20080414
  Receipt Date: 20080408
  Transmission Date: 20081010
  Serious: Yes (Hospitalization)
  Sender: FDA-Public Use
  Company Number: FR-WYE-G01364408

PATIENT
  Sex: Female

DRUGS (4)
  1. NOVATREX [Suspect]
     Indication: RHEUMATOID ARTHRITIS
     Route: 048
     Dates: start: 20010101
  2. OROZAMUDOL [Suspect]
     Indication: PAIN
     Dosage: 3 DOSE-FORM PER DAY
     Route: 048
     Dates: start: 20071101, end: 20071108
  3. HUMIRA [Suspect]
     Indication: RHEUMATOID ARTHRITIS
     Dosage: ONE DOSE EVERY 2 WEEKS
     Route: 058
     Dates: start: 20051001
  4. INIPOMP [Suspect]
     Route: 048
     Dates: start: 20060101

REACTIONS (2)
  - COLITIS ISCHAEMIC [None]
  - CONSTIPATION [None]
